FAERS Safety Report 6450984-5 (Version None)
Quarter: 2009Q4

REPORT INFORMATION
  Report Type: 
  Country: None (occurrence: None)
  Receive Date: 20091123
  Receipt Date: 20091112
  Transmission Date: 20100525
  Serious: Yes (Other)
  Sender: FDA-Public Use
  Company Number: B0596461A

PATIENT
  Sex: Male
  Weight: 38 kg

DRUGS (4)
  1. RELENZA [Suspect]
     Indication: INFLUENZA
     Dosage: 10MG PER DAY
     Route: 055
     Dates: start: 20091001, end: 20091001
  2. CALONAL [Concomitant]
     Route: 048
     Dates: start: 20091001
  3. MUCODYNE [Concomitant]
  4. MUCOSOLVAN [Concomitant]

REACTIONS (5)
  - ABNORMAL BEHAVIOUR [None]
  - DELIRIUM FEBRILE [None]
  - FALL [None]
  - HALLUCINATION, AUDITORY [None]
  - LACERATION [None]
